FAERS Safety Report 14616809 (Version 1)
Quarter: 2018Q1

REPORT INFORMATION
  Report Type: Spontaneous
  Country: US (occurrence: US)
  Receive Date: 20180308
  Receipt Date: 20180308
  Transmission Date: 20180509
  Serious: Yes (Other)
  Sender: FDA-Public Use
  Company Number: None

PATIENT
  Age: 53 Year
  Sex: Female
  Weight: 56.25 kg

DRUGS (7)
  1. FLUOXETINE HCL 40MG CAP [Suspect]
     Active Substance: FLUOXETINE HYDROCHLORIDE
     Indication: DEPRESSION
     Dosage: ?          QUANTITY:2 CAPSULE(S);?
     Route: 048
     Dates: start: 20180226, end: 20180308
  2. FLUOXETINE HCL 40MG CAP [Suspect]
     Active Substance: FLUOXETINE HYDROCHLORIDE
     Indication: ANXIETY
     Dosage: ?          QUANTITY:2 CAPSULE(S);?
     Route: 048
     Dates: start: 20180226, end: 20180308
  3. BUPROPRION [Concomitant]
     Active Substance: BUPROPION
  4. CLARITIN [Concomitant]
     Active Substance: LORATADINE
  5. FLUOXETINE HCL 40MG CAP [Suspect]
     Active Substance: FLUOXETINE HYDROCHLORIDE
     Indication: HEADACHE
     Dosage: ?          QUANTITY:2 CAPSULE(S);?
     Route: 048
     Dates: start: 20180226, end: 20180308
  6. ALPRAZOLAM. [Concomitant]
     Active Substance: ALPRAZOLAM
  7. TOPIRAMATE. [Concomitant]
     Active Substance: TOPIRAMATE

REACTIONS (5)
  - Impaired work ability [None]
  - Nausea [None]
  - Product substitution issue [None]
  - Migraine [None]
  - Weight decreased [None]

NARRATIVE: CASE EVENT DATE: 20180301
